FAERS Safety Report 13285598 (Version 1)
Quarter: 2017Q1

REPORT INFORMATION
  Report Type: Report from Study
  Country: US (occurrence: US)
  Receive Date: 20170301
  Receipt Date: 20170301
  Transmission Date: 20170428
  Serious: Yes (Other)
  Sender: FDA-Public Use
  Company Number: US-BRISTOL-MYERS SQUIBB COMPANY-BMS-2016-092981

PATIENT
  Sex: Female

DRUGS (3)
  1. NIVOLUMAB [Suspect]
     Active Substance: NIVOLUMAB
     Indication: NON-SMALL CELL LUNG CANCER
     Dosage: UNK, Q2WK
     Route: 042
     Dates: start: 20160927
  2. PRAVASTATIN SODIUM. [Suspect]
     Active Substance: PRAVASTATIN SODIUM
     Indication: PRODUCT USED FOR UNKNOWN INDICATION
     Route: 065
  3. BAYER ASPIRIN [Suspect]
     Active Substance: ASPIRIN
     Indication: PRODUCT USED FOR UNKNOWN INDICATION
     Route: 065

REACTIONS (8)
  - Nasopharyngitis [Recovering/Resolving]
  - Rhinorrhoea [Not Recovered/Not Resolved]
  - Oxygen supplementation [Unknown]
  - Dyspnoea [Recovered/Resolved]
  - Pain [Recovered/Resolved]
  - Sciatica [Not Recovered/Not Resolved]
  - Fatigue [Unknown]
  - Sleep disorder [Unknown]
